FAERS Safety Report 4429448-6 (Version None)
Quarter: 2004Q3

REPORT INFORMATION
  Report Type: 
  Country: None (occurrence: None)
  Receive Date: 20040819
  Receipt Date: 20040811
  Transmission Date: 20050211
  Serious: Yes (Disabling)
  Sender: FDA-Public Use
  Company Number: GB-BRISTOL-MYERS SQUIBB COMPANY-12670444

PATIENT

DRUGS (6)
  1. METFORMIN HCL [Suspect]
     Indication: DIABETES MELLITUS
     Route: 048
     Dates: start: 20040709, end: 20040716
  2. ASPIRIN [Concomitant]
     Route: 048
     Dates: start: 20040514
  3. ATENOLOL [Concomitant]
     Route: 048
     Dates: start: 19910729
  4. BENDROFLUAZIDE [Concomitant]
     Route: 048
     Dates: start: 20040514
  5. ENALAPRIL MALEATE [Concomitant]
     Route: 048
     Dates: start: 20040514
  6. SIMVASTATIN [Concomitant]
     Route: 048
     Dates: start: 20040514

REACTIONS (2)
  - HEADACHE [None]
  - VISUAL ACUITY REDUCED [None]
